FAERS Safety Report 14753594 (Version 2)
Quarter: 2018Q3

REPORT INFORMATION
  Report Type: Spontaneous
  Country: DE (occurrence: DE)
  Receive Date: 20180412
  Receipt Date: 20180706
  Transmission Date: 20181010
  Serious: Yes (Other)
  Sender: FDA-Public Use
  Company Number: DE-PFIZER INC-2018117638

PATIENT
  Age: 25 Year
  Sex: Female

DRUGS (2)
  1. CYTOTEC [Suspect]
     Active Substance: MISOPROSTOL
     Dosage: 2 DF, UNK
     Route: 067
     Dates: start: 201706
  2. CYTOTEC [Suspect]
     Active Substance: MISOPROSTOL
     Indication: ABORTION INDUCED
     Dosage: 2 DF, UNK
     Route: 048
     Dates: start: 201706

REACTIONS (8)
  - Dyspnoea [Unknown]
  - Palpitations [Unknown]
  - Loss of consciousness [Unknown]
  - Muscle twitching [Not Recovered/Not Resolved]
  - Product use in unapproved indication [Unknown]
  - Chest discomfort [Not Recovered/Not Resolved]
  - Haemorrhage [Unknown]
  - Eructation [Not Recovered/Not Resolved]

NARRATIVE: CASE EVENT DATE: 2017
